FAERS Safety Report 7927008-3 (Version None)
Quarter: 2011Q4

REPORT INFORMATION
  Report Type: 
  Country: None (occurrence: None)
  Receive Date: 20111118
  Receipt Date: 20111114
  Transmission Date: 20120403
  Serious: Yes (Death)
  Sender: FDA-Public Use
  Company Number: CN-BRISTOL-MYERS SQUIBB COMPANY-16231748

PATIENT
  Age: 43 Year
  Sex: Male

DRUGS (1)
  1. DASATINIB [Suspect]
     Indication: ACUTE LYMPHOCYTIC LEUKAEMIA
     Dosage: 08JUL08-03APR2009:140MG 4APR09-200MG, DAILY.
     Dates: start: 20080708

REACTIONS (2)
  - PLEURAL EFFUSION [None]
  - OEDEMA [None]
